FAERS Safety Report 10085685 (Version 3)
Quarter: 2014Q2

REPORT INFORMATION
  Report Type: Report from Study
  Country: NL (occurrence: NL)
  Receive Date: 20140418
  Receipt Date: 20140623
  Transmission Date: 20141212
  Serious: Yes (Death, Hospitalization)
  Sender: FDA-Public Use
  Company Number: NL-ROCHE-1384435

PATIENT
  Sex: Female
  Weight: 70 kg

DRUGS (1)
  1. MIRCERA [Suspect]
     Indication: NEPHROGENIC ANAEMIA
     Dosage: 167 MCG/ML WWSP 0.3 ML
     Route: 058
     Dates: start: 20130201

REACTIONS (2)
  - Death [Fatal]
  - General physical health deterioration [Not Recovered/Not Resolved]
